FAERS Safety Report 6318575-4 (Version None)
Quarter: 2009Q3

REPORT INFORMATION
  Report Type: 
  Country: None (occurrence: None)
  Receive Date: 20090821
  Receipt Date: 20090818
  Transmission Date: 20100115
  Serious: Yes (Death, Hospitalization, Other)
  Sender: FDA-Public Use
  Company Number: PHHY2009GB33360

PATIENT
  Sex: Female

DRUGS (12)
  1. CLOZARIL [Suspect]
     Indication: SCHIZOPHRENIA
     Dosage: UNK
     Dates: start: 20080721
  2. CLOZARIL [Suspect]
     Dosage: 100 MG DAILY
     Route: 048
  3. VALPROATE SODIUM [Concomitant]
     Indication: AFFECTIVE DISORDER
     Dosage: 2500 MG
     Route: 048
  4. VALPROATE SODIUM [Concomitant]
     Indication: EPILEPSY
  5. LAMOTRIGINE [Concomitant]
     Indication: AFFECTIVE DISORDER
     Dosage: 150 MG, BID
     Route: 048
  6. LAMOTRIGINE [Concomitant]
     Indication: EPILEPSY
  7. MEDROXYPROGESTERONE ACETATE [Concomitant]
     Indication: MENORRHAGIA
     Dosage: 1 TABLET
     Route: 048
  8. SENNA [Concomitant]
     Indication: CONSTIPATION
     Route: 048
  9. AMISULPRIDE [Concomitant]
     Dosage: 10 MG DAILY
     Route: 048
  10. AEROBEC [Concomitant]
     Indication: ASTHMA
     Dosage: 1 PUFF
     Route: 048
  11. MEBEVERINE [Concomitant]
     Indication: IRRITABLE BOWEL SYNDROME
     Dosage: 130 MG DAILY
     Route: 048
  12. BENDROFLUMETHIAZIDE [Concomitant]
     Dosage: 5 MG
     Route: 048

REACTIONS (6)
  - ABNORMAL BEHAVIOUR [None]
  - HYPOVENTILATION [None]
  - MOBILITY DECREASED [None]
  - MYOCARDIAL INFARCTION [None]
  - OBESITY [None]
  - WEIGHT INCREASED [None]
